FAERS Safety Report 6588965-3 (Version None)
Quarter: 2010Q1

REPORT INFORMATION
  Report Type: 
  Country: None (occurrence: None)
  Receive Date: 20100218
  Receipt Date: 20100208
  Transmission Date: 20100710
  Serious: Yes (Hospitalization)
  Sender: FDA-Public Use
  Company Number: FR-PFIZER INC-2010015885

PATIENT
  Age: 40 Year
  Sex: Male
  Weight: 83 kg

DRUGS (6)
  1. CAMPTOSAR [Suspect]
     Dosage: 300 MG
     Route: 041
     Dates: start: 20100118, end: 20100118
  2. MITOMYCIN [Suspect]
     Dosage: 58 MG
     Route: 041
     Dates: start: 20100118, end: 20100118
  3. DEBRIDAT ^IBRAHIM^ [Concomitant]
     Dosage: 50 MG, 3X/DAY
     Route: 042
     Dates: start: 20100119, end: 20100129
  4. PARACETAMOL [Concomitant]
     Indication: PAIN
     Dosage: UNK
     Route: 042
     Dates: start: 20100127, end: 20100129
  5. ERYTHROCINE [Concomitant]
     Dosage: 1 G
     Route: 042
     Dates: start: 20100119, end: 20100129
  6. ATARAX [Concomitant]
     Dosage: 100 MG/2ML
     Route: 042
     Dates: start: 20100123, end: 20100129

REACTIONS (1)
  - APLASIA [None]
